FAERS Safety Report 11980989 (Version 2)
Quarter: 2016Q1

REPORT INFORMATION
  Report Type: Report from Study
  Country: FR (occurrence: FR)
  Receive Date: 20160129
  Receipt Date: 20160329
  Transmission Date: 20160526
  Serious: Yes (Hospitalization)
  Sender: FDA-Public Use
  Company Number: PHHO2016FR001381

PATIENT
  Age: 70 Year
  Sex: Female
  Weight: 51 kg

DRUGS (2)
  1. AMN107 [Suspect]
     Active Substance: NILOTINIB
     Indication: CHRONIC MYELOID LEUKAEMIA
     Dosage: 300 MG, QD
     Route: 048
     Dates: start: 20080620, end: 20160111
  2. AMN107 [Suspect]
     Active Substance: NILOTINIB
     Dosage: UNK
     Route: 048
     Dates: start: 20160119

REACTIONS (1)
  - Transitional cell carcinoma [Recovered/Resolved]

NARRATIVE: CASE EVENT DATE: 20151102
